FAERS Safety Report 8479834-2 (Version None)
Quarter: 2012Q2

REPORT INFORMATION
  Report Type: 
  Country: None (occurrence: None)
  Receive Date: 20120629
  Receipt Date: 20120627
  Transmission Date: 20120825
  Serious: No
  Sender: FDA-Public Use
  Company Number: US-TEVA-345696USA

PATIENT
  Sex: Female
  Weight: 53.572 kg

DRUGS (2)
  1. MINOCYCLINE HCL [Concomitant]
     Indication: ACNE
  2. PLAN B ONE-STEP [Suspect]
     Indication: POST COITAL CONTRACEPTION
     Dosage: 1.5 MILLIGRAM;
     Route: 048
     Dates: start: 20120621, end: 20120621

REACTIONS (2)
  - MENSTRUATION IRREGULAR [None]
  - OFF LABEL USE [None]
